FAERS Safety Report 8218616-3 (Version None)
Quarter: 2012Q1

REPORT INFORMATION
  Report Type: 
  Country: None (occurrence: None)
  Receive Date: 20120319
  Receipt Date: 20120313
  Transmission Date: 20120608
  Serious: Yes (Other)
  Sender: FDA-Public Use
  Company Number: CA-ABBOTT-12P-028-0909534-00

PATIENT
  Sex: Female
  Weight: 44.492 kg

DRUGS (4)
  1. AMOXICILLIN AND CLAVULANATE POTASSIUM [Concomitant]
     Indication: CROHN'S DISEASE
     Route: 048
  2. HUMIRA [Suspect]
     Indication: CROHN'S DISEASE
     Route: 058
     Dates: start: 20100331, end: 20120207
  3. FLAGYL [Concomitant]
     Indication: CROHN'S DISEASE
     Route: 048
  4. HUMIRA [Suspect]
     Route: 058
     Dates: start: 20120224

REACTIONS (2)
  - FISTULA [None]
  - PAIN [None]
